FAERS Safety Report 25610545 (Version 1)
Quarter: 2025Q3

REPORT INFORMATION
  Report Type: Spontaneous
  Country: US (occurrence: US)
  Receive Date: 20250728
  Receipt Date: 20250728
  Transmission Date: 20251020
  Serious: Yes (Hospitalization, Other)
  Sender: SANDOZ
  Company Number: US-SANDOZ-SDZ2025US053121

PATIENT
  Age: 67 Year
  Sex: Female

DRUGS (5)
  1. LAPINE T-LYMPHOCYTE IMMUNE GLOBULIN [Suspect]
     Active Substance: LAPINE T-LYMPHOCYTE IMMUNE GLOBULIN
     Indication: Product used for unknown indication
     Route: 065
  2. CYCLOSPORINE [Suspect]
     Active Substance: CYCLOSPORINE
     Dosage: 150 MG, BID
     Route: 065
  3. CYCLOSPORINE [Suspect]
     Active Substance: CYCLOSPORINE
     Indication: Product used for unknown indication
     Route: 065
     Dates: start: 20210208
  4. ELTROMBOPAG [Suspect]
     Active Substance: ELTROMBOPAG
     Dosage: 150 MG, QD
     Route: 065
     Dates: start: 20230630
  5. ELTROMBOPAG [Suspect]
     Active Substance: ELTROMBOPAG
     Indication: Product used for unknown indication
     Route: 065
     Dates: start: 20210208

REACTIONS (13)
  - Haemolysis [Unknown]
  - Anaemia [Recovering/Resolving]
  - Decreased appetite [Unknown]
  - Dizziness [Unknown]
  - Blood pressure increased [Unknown]
  - Abdominal pain [Unknown]
  - Abdominal distension [Unknown]
  - Hypoaesthesia [Unknown]
  - Burning sensation [Unknown]
  - Dysuria [Unknown]
  - Headache [Unknown]
  - Nausea [Unknown]
  - Fall [Unknown]

NARRATIVE: CASE EVENT DATE: 20250701
